FAERS Safety Report 10056222 (Version 1)
Quarter: 2014Q2

REPORT INFORMATION
  Report Type: Spontaneous
  Country: GB (occurrence: GB)
  Receive Date: 20140403
  Receipt Date: 20140403
  Transmission Date: 20141212
  Serious: Yes (Life-Threatening)
  Sender: FDA-Public Use
  Company Number: GB-JNJFOC-20140401524

PATIENT
  Age: 86 Year
  Sex: Male
  Weight: 56 kg

DRUGS (9)
  1. XARELTO [Suspect]
     Indication: EMBOLISM VENOUS
     Route: 048
     Dates: start: 20140306, end: 20140314
  2. XARELTO [Suspect]
     Indication: DEEP VEIN THROMBOSIS
     Route: 048
     Dates: start: 20140306, end: 20140314
  3. PARACETAMOL [Concomitant]
     Route: 065
  4. SENNA [Concomitant]
     Route: 065
  5. LAXIDO [Concomitant]
     Route: 065
  6. OMEPRAZOLE [Concomitant]
     Route: 065
  7. AMITRIPTYLINE [Concomitant]
     Route: 065
  8. ADCAL-D3 [Concomitant]
     Route: 065
  9. CITALOPRAM [Concomitant]
     Route: 065

REACTIONS (2)
  - Electrocardiogram change [Recovering/Resolving]
  - Hyperkalaemia [Recovering/Resolving]
